FAERS Safety Report 17173579 (Version 1)
Quarter: 2019Q4

REPORT INFORMATION
  Report Type: Spontaneous
  Country: US (occurrence: US)
  Receive Date: 20191218
  Receipt Date: 20191218
  Transmission Date: 20200122
  Serious: No
  Sender: FDA-Public Use
  Company Number: US-ASTRAZENECA-2019SE75273

PATIENT
  Age: 57 Year
  Sex: Male

DRUGS (1)
  1. ZOMIG [Suspect]
     Active Substance: ZOLMITRIPTAN
     Dosage: 1 SPRAY AT ONSET OF MIGRAINE. MAY REPEAT ONCE AFTER 2 HOURS IF NEEDED. DO NOT EXCEED 24 HOURS
     Route: 045

REACTIONS (2)
  - Nephrolithiasis [Unknown]
  - Product dose omission [Unknown]

NARRATIVE: CASE EVENT DATE: 20191210
